FAERS Safety Report 16617154 (Version 1)
Quarter: 2019Q3

REPORT INFORMATION
  Report Type: Report from Study
  Country: US (occurrence: US)
  Receive Date: 20190723
  Receipt Date: 20190723
  Transmission Date: 20191004
  Serious: Yes (Other)
  Sender: FDA-Public Use
  Company Number: US-PFIZER INC-2018243710

PATIENT
  Age: 55 Year
  Sex: Female

DRUGS (3)
  1. IBRANCE [Suspect]
     Active Substance: PALBOCICLIB
     Indication: BREAST CANCER FEMALE
     Dosage: 125 MG, CYCLIC (DAILY, 21 DAYS ON/7 DAYS OFF)
     Route: 048
     Dates: start: 20180525
  2. MSIR [Concomitant]
     Active Substance: MORPHINE SULFATE
     Indication: PAIN
     Dosage: 15 MG, 2X/DAY (Q12 H/EVERY 12 HOURS)
     Route: 048
  3. LETROZOLE. [Concomitant]
     Active Substance: LETROZOLE
     Indication: BREAST CANCER
     Dosage: 25 MG, DAILY
     Route: 048
     Dates: start: 20180518

REACTIONS (8)
  - Nausea [Recovered/Resolved]
  - Joint noise [Recovered/Resolved]
  - Impaired healing [Not Recovered/Not Resolved]
  - Back pain [Not Recovered/Not Resolved]
  - Cellulitis [Not Recovered/Not Resolved]
  - Fatigue [Not Recovered/Not Resolved]
  - Increased appetite [Not Recovered/Not Resolved]
  - Pain in extremity [Not Recovered/Not Resolved]

NARRATIVE: CASE EVENT DATE: 2018
